FAERS Safety Report 8844365 (Version 2)
Quarter: 2013Q1

REPORT INFORMATION
  Report Type: Spontaneous
  Country: US (occurrence: None)
  Receive Date: 20121017
  Receipt Date: 20130110
  Transmission Date: 20140127
  Serious: Yes (Hospitalization, Other)
  Sender: FDA-Public Use
  Company Number: None

PATIENT
  Age: 11 Year
  Sex: Male
  Weight: 45.36 kg

DRUGS (1)
  1. LIDOCAINE [Suspect]

REACTIONS (13)
  - Epiglottitis [None]
  - Myalgia [None]
  - Headache [None]
  - Nausea [None]
  - Dizziness [None]
  - Fall [None]
  - Fatigue [None]
  - Ear pain [None]
  - Hypoacusis [None]
  - Visual impairment [None]
  - Neck pain [None]
  - Insomnia [None]
  - Sinusitis [None]
